FAERS Safety Report 6443433-4 (Version None)
Quarter: 2009Q4

REPORT INFORMATION
  Report Type: 
  Country: None (occurrence: None)
  Receive Date: 20091117
  Receipt Date: 20091105
  Transmission Date: 20100525
  Serious: Yes (Hospitalization)
  Sender: FDA-Public Use
  Company Number: JP-PFIZER INC-2009284671

PATIENT
  Age: 79 Year
  Sex: Male
  Weight: 68 kg

DRUGS (10)
  1. SUNITINIB MALATE [Suspect]
     Indication: GASTROINTESTINAL STROMAL TUMOUR
     Dosage: 37.5 MG, 1X/DAY
     Route: 048
     Dates: start: 20090409
  2. TAKEPRON [Concomitant]
     Dosage: UNK
     Route: 048
  3. EXCELASE [Concomitant]
     Dosage: UNK
     Route: 048
  4. NAIXAN [Concomitant]
     Dosage: UNK
     Route: 048
  5. CYTOTEC [Concomitant]
     Dosage: UNK
     Route: 048
  6. VALSARTAN [Concomitant]
     Dosage: UNK
     Route: 048
  7. ROHYPNOL [Concomitant]
     Dosage: UNK
     Route: 048
  8. DESYREL [Concomitant]
     Dosage: UNK
     Route: 048
  9. ALDACTONE [Concomitant]
     Dosage: UNK
     Route: 048
  10. ZOMETA [Concomitant]
     Dosage: UNK
     Route: 042

REACTIONS (2)
  - DIARRHOEA [None]
  - PNEUMONIA BACTERIAL [None]
